FAERS Safety Report 5410481-2 (Version None)
Quarter: 2007Q3

REPORT INFORMATION
  Report Type: 
  Country: None (occurrence: None)
  Receive Date: 20070810
  Receipt Date: 20070111
  Transmission Date: 20080115
  Serious: No
  Sender: FDA-Public Use
  Company Number: A0635220A

PATIENT
  Age: 89 Year
  Sex: Female

DRUGS (7)
  1. PAROXETINE HYDROCHLORIDE [Suspect]
     Indication: DEPRESSION
     Dosage: 30MG PER DAY
     Route: 048
     Dates: start: 20020101, end: 20061201
  2. LORAZEPAM [Concomitant]
  3. DIOVAN [Concomitant]
  4. CARDIZEM [Concomitant]
  5. WARFARIN SODIUM [Concomitant]
  6. LEVOTHYROXINE SODIUM [Concomitant]
  7. ATENOLOL [Concomitant]

REACTIONS (7)
  - ANOREXIA [None]
  - ANXIETY [None]
  - CONFUSIONAL STATE [None]
  - DEPRESSION [None]
  - PANIC ATTACK [None]
  - POOR QUALITY SLEEP [None]
  - SOMNOLENCE [None]
